FAERS Safety Report 6707304-8 (Version None)
Quarter: 2010Q2

REPORT INFORMATION
  Report Type: 
  Country: None (occurrence: None)
  Receive Date: 20100503
  Receipt Date: 20091104
  Transmission Date: 20101027
  Serious: No
  Sender: FDA-Public Use
  Company Number: US-ASTRAZENECA-2009SE24363

PATIENT
  Age: 90 Year
  Sex: Female

DRUGS (4)
  1. NEXIUM [Suspect]
     Route: 048
     Dates: start: 20090901
  2. KAPIDEX [Suspect]
     Dates: start: 20090801
  3. KAPIDEX [Suspect]
  4. PREDNISONE [Concomitant]

REACTIONS (2)
  - ACCIDENTAL OVERDOSE [None]
  - DIARRHOEA [None]
